FAERS Safety Report 16063817 (Version 3)
Quarter: 2019Q2

REPORT INFORMATION
  Report Type: Spontaneous
  Country: US (occurrence: US)
  Receive Date: 20190312
  Receipt Date: 20190411
  Transmission Date: 20190711
  Serious: Yes (Hospitalization, Other)
  Sender: FDA-Public Use
  Company Number: US-AMGEN INC.-USASP2019036342

PATIENT
  Age: 45 Year
  Sex: Female
  Weight: 69.39 kg

DRUGS (1)
  1. AIMOVIG [Suspect]
     Active Substance: ERENUMAB-AOOE
     Indication: MIGRAINE PROPHYLAXIS
     Dosage: 70 MILLIGRAM, QMO
     Route: 065
     Dates: start: 20181013

REACTIONS (4)
  - Syncope [Recovered/Resolved]
  - Jaw fracture [Unknown]
  - Fall [Unknown]
  - Tooth loss [Unknown]

NARRATIVE: CASE EVENT DATE: 20181019
